FAERS Safety Report 13470209 (Version 1)
Quarter: 2017Q2

REPORT INFORMATION
  Report Type: Spontaneous
  Country: US (occurrence: US)
  Receive Date: 20170423
  Receipt Date: 20170423
  Transmission Date: 20170830
  Serious: No
  Sender: FDA-Public Use
  Company Number: US-ASTRAZENECA-2017SE40241

PATIENT
  Age: 54 Year
  Sex: Female
  Weight: 52.2 kg

DRUGS (8)
  1. CRESTOR [Suspect]
     Active Substance: ROSUVASTATIN CALCIUM
     Indication: BLOOD CHOLESTEROL ABNORMAL
     Route: 048
     Dates: start: 2010
  2. LISINOPRIL. [Suspect]
     Active Substance: LISINOPRIL
     Indication: BLOOD PRESSURE ABNORMAL
     Route: 048
     Dates: start: 2010
  3. MOVANTIK [Suspect]
     Active Substance: NALOXEGOL OXALATE
     Indication: CONSTIPATION
     Route: 048
     Dates: start: 20170412, end: 20170413
  4. FENTANYL. [Concomitant]
     Active Substance: FENTANYL
     Indication: PAIN
     Route: 061
     Dates: start: 2004
  5. HYDROCODONE [Concomitant]
     Active Substance: HYDROCODONE
     Indication: PAIN
     Dosage: 10-325, TWO TIMES A DAY
     Route: 065
     Dates: start: 2004
  6. MOVANTIK [Suspect]
     Active Substance: NALOXEGOL OXALATE
     Indication: CONSTIPATION
     Dosage: SECOND DOSE
     Route: 048
     Dates: start: 20170414
  7. L THYROXINE [Concomitant]
     Active Substance: LEVOTHYROXINE SODIUM
     Indication: THYROID DISORDER
     Route: 048
     Dates: start: 2010
  8. PREMARIN [Concomitant]
     Active Substance: ESTROGENS, CONJUGATED
     Indication: HYSTERECTOMY
     Route: 065

REACTIONS (13)
  - Diarrhoea [Recovering/Resolving]
  - Irritability [Recovering/Resolving]
  - Abdominal pain upper [Unknown]
  - Hot flush [Recovering/Resolving]
  - Weight decreased [Unknown]
  - Drug dose omission [Unknown]
  - Cold sweat [Recovering/Resolving]
  - Disease recurrence [Not Recovered/Not Resolved]
  - Chills [Recovering/Resolving]
  - Thyroid disorder [Unknown]
  - Pain in extremity [Recovering/Resolving]
  - Anxiety [Recovering/Resolving]
  - Constipation [Unknown]

NARRATIVE: CASE EVENT DATE: 2010
